FAERS Safety Report 4471949-9 (Version None)
Quarter: 2004Q4

REPORT INFORMATION
  Report Type: 
  Country: None (occurrence: None)
  Receive Date: 20041007
  Receipt Date: 20040927
  Transmission Date: 20050328
  Serious: Yes (Hospitalization)
  Sender: FDA-Public Use
  Company Number: 2004071853

PATIENT
  Age: 46 Year
  Sex: Male

DRUGS (11)
  1. NEURONTIN [Suspect]
     Indication: ILL-DEFINED DISORDER
  2. PHENYTOIN SUSPENSION (PHENYTOIN SUSPENSION) [Suspect]
     Indication: ILL-DEFINED DISORDER
  3. LAMOTRIGINE [Suspect]
     Indication: ILL-DEFINED DISORDER
  4. TOPIRAMATE [Suspect]
     Indication: ILL-DEFINED DISORDER
  5. VALPROIC ACID [Suspect]
     Indication: ILL-DEFINED DISORDER
  6. CARBAMAZEPINE [Concomitant]
  7. LEVETIRACETAM [Concomitant]
  8. LEVODOPA (LEVODOPA) [Concomitant]
  9. ENTACAPONE (ENTACAPONE) [Concomitant]
  10. PERGOLIDE MESYLATE [Concomitant]
  11. AMANTADINE (AMANTADINE) [Concomitant]

REACTIONS (5)
  - BRAIN SCAN ABNORMAL [None]
  - DEPRESSED LEVEL OF CONSCIOUSNESS [None]
  - EPILEPSY [None]
  - SPEECH DISORDER [None]
  - STEREOTYPY [None]
